FAERS Safety Report 21038239 (Version 2)
Quarter: 2022Q3

REPORT INFORMATION
  Report Type: Report from Study
  Country: US (occurrence: None)
  Receive Date: 20220704
  Receipt Date: 20220824
  Transmission Date: 20221027
  Serious: Yes (Other)
  Sender: FDA-Public Use
  Company Number: US-Merck Healthcare KGaA-9301825

PATIENT
  Sex: Female

DRUGS (1)
  1. REBIF [Suspect]
     Active Substance: INTERFERON BETA-1A
     Indication: Product used for unknown indication
     Route: 058
     Dates: start: 20191118, end: 20200228

REACTIONS (4)
  - Cerebral small vessel ischaemic disease [Unknown]
  - Malaise [Unknown]
  - Feeling abnormal [Unknown]
  - Injection site bruising [Unknown]
